FAERS Safety Report 9798011 (Version 2)
Quarter: 2014Q1

REPORT INFORMATION
  Report Type: Report from Study
  Country: US (occurrence: US)
  Receive Date: 20140106
  Receipt Date: 20140128
  Transmission Date: 20141002
  Serious: Yes (Life-Threatening)
  Sender: FDA-Public Use
  Company Number: US-009507513-1401USA000487

PATIENT
  Sex: 0

DRUGS (3)
  1. TEMODAR [Suspect]
     Indication: MALIGNANT MELANOMA
     Dosage: 75 MG/M2, QD, ON DAY 1-42
     Route: 048
  2. OBLIMERSEN SODIUM [Suspect]
     Indication: MALIGNANT MELANOMA
     Dosage: 7 MG/KG, QD, WEEK 1 AND 4
     Route: 042
  3. PACLITAXEL [Suspect]
     Indication: MALIGNANT MELANOMA
     Dosage: 175 MG/M2, ON DAY 8 AND 29

REACTIONS (1)
  - Thrombocytopenia [Recovered/Resolved]
